FAERS Safety Report 26044846 (Version 1)
Quarter: 2025Q4

REPORT INFORMATION
  Report Type: Spontaneous
  Country: KE (occurrence: KE)
  Receive Date: 20251114
  Receipt Date: 20251114
  Transmission Date: 20260117
  Serious: Yes (Life-Threatening)
  Sender: MACLEODS
  Company Number: KE-MACLEODS PHARMA-MAC2025056308

PATIENT

DRUGS (4)
  1. LIDOCAINE [Suspect]
     Active Substance: LIDOCAINE
     Indication: Local anaesthesia
     Dosage: 10 C.C 2% LIGNOCAINE, 6.475C.C (25.9 MG OF LIGNOCAINE WITH ADRENALINE, 7 MG/KG
     Route: 058
  2. LIDOCAINE [Suspect]
     Active Substance: LIDOCAINE
     Indication: Haemorrhage
  3. EPINEPHRINE [Suspect]
     Active Substance: EPINEPHRINE
     Indication: Haemorrhage
     Dosage: 6.475C.C (25.9 MG OF LIGNOCAINE WITH ADRENALINE, 7 MG/KG
     Route: 058
  4. Oxygen/nitrous oxide/halothane [Concomitant]
     Indication: Local anaesthesia
     Dosage: 5 C.C OF SOLUTION AT SCALP  SITE AND 5 C.C AT THE ABDOMINAL WALL SITE
     Route: 065

REACTIONS (5)
  - Local anaesthetic systemic toxicity [Recovered/Resolved]
  - Myoclonus [Recovered/Resolved]
  - Sinus tachycardia [Recovered/Resolved]
  - Neurotoxicity [Recovered/Resolved]
  - Overdose [Unknown]
